FAERS Safety Report 13828168 (Version 1)
Quarter: 2017Q3

REPORT INFORMATION
  Report Type: Spontaneous
  Country: US (occurrence: US)
  Receive Date: 20170803
  Receipt Date: 20170803
  Transmission Date: 20171127
  Serious: Yes (Life-Threatening, Hospitalization, Other)
  Sender: FDA-Public Use
  Company Number: US-MACLEODS PHARMACEUTICALS US LTD-MAC2016004034

PATIENT

DRUGS (1)
  1. AMLODIPINE BESYLATE 10MG TABLET [Suspect]
     Active Substance: AMLODIPINE BESYLATE
     Indication: SUICIDE ATTEMPT
     Dosage: 10 MG, EIGHTY TABLET
     Route: 048

REACTIONS (9)
  - Brain herniation [Unknown]
  - Suicide attempt [None]
  - Cardiac arrest [Unknown]
  - Mental impairment [Unknown]
  - Cardio-respiratory arrest [None]
  - Intentional overdose [Unknown]
  - Brain injury [Unknown]
  - Hypotension [Unknown]
  - Pulseless electrical activity [Unknown]
